FAERS Safety Report 8217829-4 (Version None)
Quarter: 2012Q1

REPORT INFORMATION
  Report Type: 
  Country: None (occurrence: None)
  Receive Date: 20120314
  Receipt Date: 20120301
  Transmission Date: 20120608
  Serious: Yes (Death, Hospitalization)
  Sender: FDA-Public Use
  Company Number: DSJ-2012-04140

PATIENT
  Age: 40 Year

DRUGS (6)
  1. URSODIOL [Suspect]
     Indication: HEPATITIS
     Dosage: 300 MG, PER ORAL
     Route: 048
     Dates: start: 20120101
  2. PROPRANOLOL [Concomitant]
  3. IRON (III) GLUCINATE/VITAMIN B12/VITAMIN B5VITAMIN B3VITAMIN B1/VITAMI [Concomitant]
  4. AMLODIPINE BESYLATE AND OLMESARTAN MEDOXOMIL [Suspect]
     Indication: HYPERTENSION
     Dosage: 40/10; 20/5  MG (1 IN 1 D), PER ORAL
     Route: 048
     Dates: start: 20110101, end: 20120101
  5. AMLODIPINE BESYLATE AND OLMESARTAN MEDOXOMIL [Suspect]
     Indication: HYPERTENSION
     Dosage: 40/10; 20/5  MG (1 IN 1 D), PER ORAL
     Route: 048
     Dates: start: 20120101
  6. SPIRONOLACTONE [Concomitant]

REACTIONS (5)
  - DRUG ADMINISTRATION ERROR [None]
  - HEPATIC CIRRHOSIS [None]
  - HEPATITIS [None]
  - HYPOTENSION [None]
  - MULTI-ORGAN FAILURE [None]
